FAERS Safety Report 11568215 (Version 5)
Quarter: 2015Q4

REPORT INFORMATION
  Report Type: Spontaneous
  Country: JP (occurrence: JP)
  Receive Date: 20150929
  Receipt Date: 20151029
  Transmission Date: 20160304
  Serious: Yes (Hospitalization)
  Sender: FDA-Public Use
  Company Number: JP-B.I. PHARMACEUTICALS,INC./RIDGEFIELD-2015-BI-52472NB

PATIENT
  Age: 55 Year
  Sex: Male
  Weight: 65 kg

DRUGS (10)
  1. GLACTIV [Suspect]
     Active Substance: SITAGLIPTIN
     Indication: PRODUCT USED FOR UNKNOWN INDICATION
     Dosage: 50 MG
     Route: 048
     Dates: start: 20130824, end: 20140525
  2. METGLUCO [Suspect]
     Active Substance: METFORMIN HYDROCHLORIDE
     Indication: DIABETES MELLITUS
     Dosage: 500 MG
     Route: 048
     Dates: start: 20130710, end: 20150108
  3. METGLUCO [Suspect]
     Active Substance: METFORMIN HYDROCHLORIDE
     Dosage: 500 MG
     Route: 048
     Dates: start: 20150403, end: 20150506
  4. GLACTIV [Suspect]
     Active Substance: SITAGLIPTIN
     Dosage: 50 MG
     Route: 048
     Dates: start: 20141212, end: 20150108
  5. GLACTIV [Suspect]
     Active Substance: SITAGLIPTIN
     Dosage: 100 MG
     Route: 048
     Dates: start: 20140526, end: 20141211
  6. AMARYL [Suspect]
     Active Substance: GLIMEPIRIDE
     Indication: PRODUCT USED FOR UNKNOWN INDICATION
     Dosage: 0.5 MG
     Route: 048
     Dates: start: 20141113, end: 20150305
  7. TRAZENTA [Suspect]
     Active Substance: LINAGLIPTIN
     Indication: DIABETES MELLITUS
     Dosage: 5 MG
     Route: 048
     Dates: start: 20150109
  8. METGLUCO [Suspect]
     Active Substance: METFORMIN HYDROCHLORIDE
     Dosage: 1000 MG
     Route: 048
     Dates: start: 20150507
  9. AZILVA [Suspect]
     Active Substance: AZILSARTAN KAMEDOXOMIL
     Indication: PRODUCT USED FOR UNKNOWN INDICATION
     Dosage: 20 MG
     Route: 048
     Dates: start: 20150109, end: 20150728
  10. AMARYL [Suspect]
     Active Substance: GLIMEPIRIDE
     Dosage: 1 MG
     Route: 048
     Dates: start: 20150306

REACTIONS (1)
  - Renal disorder [Not Recovered/Not Resolved]

NARRATIVE: CASE EVENT DATE: 20150729
